FAERS Safety Report 5708760-4 (Version None)
Quarter: 2008Q2

REPORT INFORMATION
  Report Type: 
  Country: None (occurrence: None)
  Receive Date: 20080416
  Receipt Date: 20080408
  Transmission Date: 20081010
  Serious: Yes (Hospitalization)
  Sender: FDA-Public Use
  Company Number: CHNY2008JP01555

PATIENT
  Age: 81 Year
  Sex: Female

DRUGS (1)
  1. PURSENNID   (SENNA GLYCOSIDES (CA SALTS OF PURIFED SENNA EXTRACT)) UNK [Suspect]
     Indication: CONSTIPATION
     Dosage: 24 MG, ONCE/SINGLE, ORAL
     Route: 048

REACTIONS (1)
  - MACULAR OEDEMA [None]
